FAERS Safety Report 10197862 (Version 1)
Quarter: 2014Q2

REPORT INFORMATION
  Report Type: Spontaneous
  Country: IL (occurrence: IL)
  Receive Date: 20140527
  Receipt Date: 20140527
  Transmission Date: 20141212
  Serious: Yes (Other)
  Sender: FDA-Public Use
  Company Number: IL-NOVEN-13IL006667

PATIENT
  Age: 10 Year
  Sex: Female

DRUGS (1)
  1. DAYTRANA [Suspect]
     Indication: PRODUCT USED FOR UNKNOWN INDICATION
     Dosage: 15 MG, UNK
     Route: 062
     Dates: start: 201208, end: 201303

REACTIONS (2)
  - Convulsion [Unknown]
  - Application site haemorrhage [Unknown]
